FAERS Safety Report 24464037 (Version 1)
Quarter: 2024Q4

REPORT INFORMATION
  Report Type: Spontaneous
  Country: GB (occurrence: GB)
  Receive Date: 20241018
  Receipt Date: 20241018
  Transmission Date: 20250115
  Serious: Yes (Other)
  Sender: MYLAN
  Company Number: GB-MYLANLABS-2024M1094130

PATIENT
  Age: 60 Year
  Sex: Male

DRUGS (14)
  1. CLOZARIL [Suspect]
     Active Substance: CLOZAPINE
     Indication: Schizophrenia
     Dosage: UNK, BID (150MG AM AND 200MG PM)
     Route: 048
     Dates: start: 20010701, end: 20240920
  2. CLOZARIL [Suspect]
     Active Substance: CLOZAPINE
     Dosage: 50 MILLIGRAM
     Route: 048
     Dates: start: 20190828
  3. CLOZARIL [Suspect]
     Active Substance: CLOZAPINE
     Dosage: UNK, BID (200MG IN MORNING AND 250MG AT NIGHT)
     Route: 048
     Dates: start: 20190828
  4. CABERGOLINE [Concomitant]
     Active Substance: CABERGOLINE
     Indication: Prolactin-producing pituitary tumour
     Dosage: 1 MILLIGRAM, BIWEEKLY (ALL ARE OVER 1 YEAR, REVIEWED BY GP)
     Route: 048
     Dates: start: 2012
  5. BECLOMETHASONE\FORMOTEROL [Concomitant]
     Active Substance: BECLOMETHASONE\FORMOTEROL
     Indication: Chronic obstructive pulmonary disease
     Dosage: UNK, BID (1 PUFF, TWICE DAILY)
     Route: 055
  6. TOLTERODINE TARTRATE [Concomitant]
     Active Substance: TOLTERODINE TARTRATE
     Indication: Urinary incontinence
     Dosage: 4 MILLIGRAM, QD (ONCE DAILY)
     Route: 048
  7. TAMSULOSIN [Concomitant]
     Active Substance: TAMSULOSIN
     Indication: Prostatic disorder
     Dosage: 400 MICROGRAM, QD (ONCE DAILY)
     Route: 048
  8. ATORVASTATIN [Concomitant]
     Active Substance: ATORVASTATIN
     Indication: Hyperlipidaemia
     Dosage: 20 MILLIGRAM, QD (ONCE DAILY)
     Route: 048
  9. LEVOTHYROXINE [Concomitant]
     Active Substance: LEVOTHYROXINE
     Indication: Thyroid disorder
     Dosage: 50 MICROGRAM, QD (ONCE DAILY)
     Route: 048
  10. POLYETHYLENE GLYCOL 3350\POTASSIUM CHLORIDE\SODIUM BICARBONATE\SODIUM [Concomitant]
     Active Substance: POLYETHYLENE GLYCOL 3350\POTASSIUM CHLORIDE\SODIUM BICARBONATE\SODIUM CHLORIDE
     Indication: Constipation
     Dosage: UNK, PRN (HALF A SACHET, IF NEEDED ACCORDING TO PROTOCOL)
     Route: 048
  11. OMEPRAZOLE [Concomitant]
     Active Substance: OMEPRAZOLE
     Indication: Gastritis
     Dosage: 40 MILLIGRAM, BID (TWICE DAILY)
     Route: 048
  12. CHOLECALCIFEROL [Concomitant]
     Active Substance: CHOLECALCIFEROL
     Indication: Vitamin supplementation
     Dosage: 800 UNITS, QD (ONCE DAILY)
     Route: 048
  13. RANITIDINE HYDROCHLORIDE [Concomitant]
     Active Substance: RANITIDINE HYDROCHLORIDE
     Indication: Gastritis
     Dosage: 10 MILLILITER (AFTER EACH MEAL AND BEFORE BED)
     Route: 048
  14. CHLORPROMAZINE [Concomitant]
     Active Substance: CHLORPROMAZINE
     Dosage: UNK
     Route: 065
     Dates: end: 20190828

REACTIONS (10)
  - Mental impairment [Unknown]
  - Lower respiratory tract infection [Unknown]
  - Mood altered [Unknown]
  - Malaise [Unknown]
  - Walking aid user [Unknown]
  - Urinary tract infection [Unknown]
  - Fall [Unknown]
  - Fracture [Unknown]
  - Tremor [Unknown]
  - Hypotension [Unknown]

NARRATIVE: CASE EVENT DATE: 20180914
